FAERS Safety Report 18277414 (Version 1)
Quarter: 2020Q3

REPORT INFORMATION
  Report Type: Report from Study
  Country: PH (occurrence: PH)
  Receive Date: 20200917
  Receipt Date: 20200917
  Transmission Date: 20201103
  Serious: Yes (Hospitalization)
  Sender: FDA-Public Use
  Company Number: NVSC2020PH252386

PATIENT
  Sex: Female

DRUGS (1)
  1. KRYXANA [Suspect]
     Active Substance: RIBOCICLIB
     Indication: PRODUCT USED FOR UNKNOWN INDICATION
     Dosage: UNK
     Route: 065

REACTIONS (8)
  - Pneumonia [Unknown]
  - Immunodeficiency [Unknown]
  - Renal injury [Unknown]
  - Constipation [Unknown]
  - Sepsis [Unknown]
  - Haemoglobin decreased [Unknown]
  - Stomatitis [Unknown]
  - Dysgeusia [Unknown]
